FAERS Safety Report 8847051 (Version 1)
Quarter: 2012Q4

REPORT INFORMATION
  Report Type: Spontaneous
  Country: JP (occurrence: None)
  Receive Date: 20121016
  Receipt Date: 20121016
  Transmission Date: 20130627
  Serious: Yes (Other)
  Sender: FDA-Public Use
  Company Number: 2012P1060687

PATIENT

DRUGS (1)
  1. ROPINIROLE [Suspect]
     Indication: PARKINSON^S DISEASE

REACTIONS (1)
  - Small intestine carcinoma [None]
